FAERS Safety Report 11910356 (Version 4)
Quarter: 2016Q1

REPORT INFORMATION
  Report Type: Spontaneous
  Country: JP (occurrence: JP)
  Receive Date: 20160112
  Receipt Date: 20160219
  Transmission Date: 20160526
  Serious: Yes (Life-Threatening, Hospitalization, Other)
  Sender: FDA-Public Use
  Company Number: JP-GLAXOSMITHKLINE-JP2015JPN181888

PATIENT
  Sex: Male

DRUGS (5)
  1. LAMICTAL [Suspect]
     Active Substance: LAMOTRIGINE
     Indication: BIPOLAR DISORDER
     Dosage: 25 MG, QOD
     Route: 048
     Dates: start: 20151117, end: 20151206
  2. SELENICA [Suspect]
     Active Substance: SELENIUM
     Dosage: UNK
     Route: 048
     Dates: end: 20151220
  3. REFLEX [Suspect]
     Active Substance: MIRTAZAPINE
     Dosage: UNK
     Route: 048
     Dates: end: 20151220
  4. LAMICTAL [Suspect]
     Active Substance: LAMOTRIGINE
     Dosage: 25 MG, 1D
     Route: 048
     Dates: start: 20151207, end: 20151219
  5. QUETIAPINE [Suspect]
     Active Substance: QUETIAPINE
     Dosage: UNK
     Route: 048
     Dates: end: 20151220

REACTIONS (7)
  - Pneumonia [Recovered/Resolved]
  - Upper respiratory tract inflammation [Unknown]
  - Rash generalised [Unknown]
  - Pyrexia [Unknown]
  - Rash [Unknown]
  - Nasopharyngitis [Unknown]
  - Mucous membrane disorder [Unknown]

NARRATIVE: CASE EVENT DATE: 201512
